FAERS Safety Report 6108724-5 (Version None)
Quarter: 2009Q1

REPORT INFORMATION
  Report Type: 
  Country: None (occurrence: None)
  Receive Date: 20090306
  Receipt Date: 20090306
  Transmission Date: 20090719
  Serious: No
  Sender: FDA-Public Use
  Company Number: None

PATIENT
  Age: 77 Year
  Sex: Female
  Weight: 62.5964 kg

DRUGS (1)
  1. LEVAQUIN [Suspect]
     Indication: SINUSITIS
     Dosage: 1 TABLET 1 PER DAY PO
     Route: 048
     Dates: start: 20090127, end: 20090202

REACTIONS (4)
  - INSOMNIA [None]
  - MYALGIA [None]
  - NEUROPATHY PERIPHERAL [None]
  - TENDON PAIN [None]
